FAERS Safety Report 11878079 (Version 4)
Quarter: 2016Q1

REPORT INFORMATION
  Report Type: Spontaneous
  Country: FR (occurrence: FR)
  Receive Date: 20151230
  Receipt Date: 20160225
  Transmission Date: 20160526
  Serious: Yes (Other)
  Sender: FDA-Public Use
  Company Number: FR-BRISTOL-MYERS SQUIBB COMPANY-BMS-2015-091000

PATIENT
  Age: 64 Year
  Sex: Male

DRUGS (3)
  1. ERBITUX [Suspect]
     Active Substance: CETUXIMAB
     Indication: SQUAMOUS CELL CARCINOMA OF THE TONGUE
     Dosage: 250 MG/M2, QCYCLE
     Route: 042
     Dates: start: 20150617, end: 20150930
  2. CARBOPLATIN HOSPIRA [Suspect]
     Active Substance: CARBOPLATIN
     Indication: SQUAMOUS CELL CARCINOMA OF THE TONGUE
     Dosage: 450 MG, QCYCLE
     Route: 042
     Dates: start: 20150708
  3. FLUOROURACIL ACCORD [Suspect]
     Active Substance: FLUOROURACIL
     Indication: SQUAMOUS CELL CARCINOMA OF THE TONGUE
     Dosage: UNK, QCYCLE
     Route: 042
     Dates: start: 20150708

REACTIONS (5)
  - Xerosis [Recovering/Resolving]
  - Erythema [Recovering/Resolving]
  - Eyelid oedema [Recovering/Resolving]
  - Anal erosion [Recovering/Resolving]
  - Aphthous ulcer [Recovering/Resolving]

NARRATIVE: CASE EVENT DATE: 201509
